FAERS Safety Report 15242471 (Version 1)
Quarter: 2018Q3

REPORT INFORMATION
  Report Type: Report from Study
  Country: None (occurrence: US)
  Receive Date: 20180806
  Receipt Date: 20180806
  Transmission Date: 20181010
  Serious: Yes (Hospitalization)
  Sender: FDA-Public Use
  Company Number: US-ABBVIE-18K-163-2369002-00

PATIENT
  Age: 61 Year
  Sex: Male
  Weight: 61.29 kg

DRUGS (1)
  1. HUMIRA [Suspect]
     Active Substance: ADALIMUMAB
     Indication: CROHN^S DISEASE
     Route: 058
     Dates: start: 20180301, end: 20180509

REACTIONS (5)
  - General physical health deterioration [Not Recovered/Not Resolved]
  - Gastrointestinal pain [Unknown]
  - Crohn^s disease [Unknown]
  - Iron deficiency anaemia [Not Recovered/Not Resolved]
  - Retching [Recovered/Resolved]

NARRATIVE: CASE EVENT DATE: 2018
